FAERS Safety Report 13667330 (Version 3)
Quarter: 2017Q3

REPORT INFORMATION
  Report Type: Report from Study
  Country: None (occurrence: US)
  Receive Date: 20170620
  Receipt Date: 20170911
  Transmission Date: 20171127
  Serious: No
  Sender: FDA-Public Use
  Company Number: US-ABBVIE-17K-163-2010162-00

PATIENT
  Sex: Female

DRUGS (1)
  1. HUMIRA [Suspect]
     Active Substance: ADALIMUMAB
     Indication: BEHCET^S SYNDROME
     Route: 058
     Dates: start: 201507

REACTIONS (4)
  - Pain [Unknown]
  - Lymphoedema [Unknown]
  - Decreased activity [Unknown]
  - Rash [Unknown]

NARRATIVE: CASE EVENT DATE: 2017
